FAERS Safety Report 15464820 (Version 5)
Quarter: 2019Q1

REPORT INFORMATION
  Report Type: Spontaneous
  Country: US (occurrence: US)
  Receive Date: 20181004
  Receipt Date: 20190326
  Transmission Date: 20190417
  Serious: No
  Sender: FDA-Public Use
  Company Number: US-PFIZER INC-2018385928

PATIENT
  Age: 14 Year
  Sex: Female
  Weight: 39.1 kg

DRUGS (2)
  1. GENOTROPIN [Suspect]
     Active Substance: SOMATROPIN
     Indication: GROWTH HORMONE DEFICIENCY
     Dosage: 0.8 MG, ONCE DAILY
     Dates: start: 20180901
  2. GENOTROPIN [Suspect]
     Active Substance: SOMATROPIN
     Dosage: 1.2 MG, ONCE DAILY
     Dates: start: 201809

REACTIONS (2)
  - Injury [Unknown]
  - Product dose omission [Unknown]
